FAERS Safety Report 6682299-4 (Version None)
Quarter: 2010Q2

REPORT INFORMATION
  Report Type: 
  Country: None (occurrence: None)
  Receive Date: 20100414
  Receipt Date: 20100414
  Transmission Date: 20101027
  Serious: No
  Sender: FDA-Public Use
  Company Number: None

PATIENT
  Age: 64 Year
  Sex: Male
  Weight: 92.5338 kg

DRUGS (1)
  1. CIPROFLOXACIN [Suspect]
     Indication: SINUSITIS
     Dosage: 500 MG TWICE DAILY
     Dates: start: 20100319, end: 20100321

REACTIONS (2)
  - ANXIETY [None]
  - HEADACHE [None]
